FAERS Safety Report 9562147 (Version 2)
Quarter: 2013Q4

REPORT INFORMATION
  Report Type: Spontaneous
  Country: BR (occurrence: None)
  Receive Date: 20130925
  Receipt Date: 20131106
  Transmission Date: 20140711
  Serious: Yes (Hospitalization)
  Sender: FDA-Public Use
  Company Number: DSJ-2013-20354

PATIENT
  Age: 62 Year
  Sex: Female
  Weight: 70 kg

DRUGS (1)
  1. BENICAR [Suspect]
     Indication: HYPERTENSION
     Dosage: 1 IN 1 D
     Route: 048
     Dates: start: 200809, end: 201309

REACTIONS (8)
  - Blood pressure increased [None]
  - Intervertebral disc operation [None]
  - Drug administration error [None]
  - Therapy cessation [None]
  - Economic problem [None]
  - Procedural complication [None]
  - Device dislocation [None]
  - Surgical procedure repeated [None]
